FAERS Safety Report 16637100 (Version 1)
Quarter: 2019Q3

REPORT INFORMATION
  Report Type: Spontaneous
  Country: US (occurrence: US)
  Receive Date: 20190726
  Receipt Date: 20190726
  Transmission Date: 20191004
  Serious: No
  Sender: FDA-Public Use
  Company Number: None

PATIENT
  Age: 65 Year
  Sex: Male
  Weight: 119.25 kg

DRUGS (1)
  1. GAMMAPLEX [Suspect]
     Active Substance: HUMAN IMMUNOGLOBULIN G
     Indication: IMMUNODEFICIENCY COMMON VARIABLE
     Dosage: ?          OTHER FREQUENCY:EVERY 4 WEEKS;?          THERAPY ONGOING: Y
     Route: 042
     Dates: start: 20190705, end: 20190705

REACTIONS (4)
  - Skin laceration [None]
  - Pain of skin [None]
  - Burning sensation [None]
  - Application site pain [None]

NARRATIVE: CASE EVENT DATE: 20190725
